FAERS Safety Report 10409148 (Version 2)
Quarter: 2014Q3

REPORT INFORMATION
  Report Type: Report from Study
  Country: AR (occurrence: AR)
  Receive Date: 20140826
  Receipt Date: 20140923
  Transmission Date: 20150326
  Serious: Yes (Other)
  Sender: FDA-Public Use
  Company Number: PHHY2014AR106336

PATIENT
  Sex: Male

DRUGS (1)
  1. EXFORGE [Suspect]
     Active Substance: AMLODIPINE BESYLATE\VALSARTAN
     Indication: HYPERTENSION
     Dosage: 160/5MG, UNK
     Route: 048

REACTIONS (4)
  - Pneumonitis [Recovering/Resolving]
  - Malaise [Recovering/Resolving]
  - Pneumonia [Recovered/Resolved]
  - Cough [Unknown]
